FAERS Safety Report 10084208 (Version 3)
Quarter: 2014Q3

REPORT INFORMATION
  Report Type: Spontaneous
  Country: US (occurrence: US)
  Receive Date: 20140417
  Receipt Date: 20140909
  Transmission Date: 20150326
  Serious: Yes (Hospitalization)
  Sender: FDA-Public Use
  Company Number: US-BAYER-2014-055747

PATIENT
  Age: 24 Year
  Sex: Female
  Weight: 75.74 kg

DRUGS (2)
  1. MOTRIN [Concomitant]
     Active Substance: IBUPROFEN
     Indication: PAIN
  2. MIRENA [Suspect]
     Active Substance: LEVONORGESTREL
     Indication: CONTRACEPTION
     Dosage: 20 MCG/24HR, CONT
     Route: 015
     Dates: start: 20120724, end: 20121017

REACTIONS (6)
  - Device issue [None]
  - Injury [None]
  - Uterine perforation [None]
  - Menorrhagia [Recovered/Resolved]
  - Pain [None]
  - Device dislocation [None]

NARRATIVE: CASE EVENT DATE: 201207
